FAERS Safety Report 24176095 (Version 1)
Quarter: 2024Q3

REPORT INFORMATION
  Report Type: Spontaneous
  Country: IN (occurrence: IN)
  Receive Date: 20240806
  Receipt Date: 20240806
  Transmission Date: 20241016
  Serious: Yes (Other)
  Sender: NOVITIUM PHARMA
  Company Number: IN-NOVITIUMPHARMA-2024INNVP01475

PATIENT
  Age: 27 Year
  Sex: Female

DRUGS (6)
  1. DEXAMETHASONE [Suspect]
     Active Substance: DEXAMETHASONE
     Indication: Endocardial fibroelastosis
  2. DEXAMETHASONE [Suspect]
     Active Substance: DEXAMETHASONE
  3. HYDROXYCHLOROQUINE SULFATE [Suspect]
     Active Substance: HYDROXYCHLOROQUINE SULFATE
     Indication: Endocardial fibroelastosis
  4. ALBUTEROL [Concomitant]
     Active Substance: ALBUTEROL
     Indication: Endocardial fibroelastosis
  5. ASPIRIN [Concomitant]
     Active Substance: ASPIRIN
     Indication: Endocardial fibroelastosis
  6. Vtiamin D [Concomitant]
     Indication: Supplementation therapy

REACTIONS (2)
  - Oligohydramnios [Unknown]
  - Exposure during pregnancy [Unknown]
